FAERS Safety Report 14630932 (Version 1)
Quarter: 2018Q1

REPORT INFORMATION
  Report Type: Spontaneous
  Country: JP (occurrence: JP)
  Receive Date: 20180313
  Receipt Date: 20180313
  Transmission Date: 20180509
  Serious: Yes (Hospitalization, Other)
  Sender: FDA-Public Use
  Company Number: JP-JNJFOC-20180303399

PATIENT
  Age: 7 Decade
  Sex: Male

DRUGS (2)
  1. DARZALEX [Suspect]
     Active Substance: DARATUMUMAB
     Indication: PLASMA CELL MYELOMA
     Route: 042
     Dates: start: 20180209
  2. LENALIDOMIDE [Suspect]
     Active Substance: LENALIDOMIDE
     Indication: PLASMA CELL MYELOMA
     Route: 048
     Dates: start: 20180209, end: 20180223

REACTIONS (3)
  - White blood cell count decreased [Unknown]
  - Pneumocystis jirovecii pneumonia [Recovered/Resolved]
  - Intussusception [Not Recovered/Not Resolved]

NARRATIVE: CASE EVENT DATE: 201802
